FAERS Safety Report 5833557-4 (Version None)
Quarter: 2008Q3

REPORT INFORMATION
  Report Type: 
  Country: None (occurrence: None)
  Receive Date: 20080805
  Receipt Date: 20080801
  Transmission Date: 20090109
  Serious: Yes (Hospitalization, Other)
  Sender: FDA-Public Use
  Company Number: US-RB-001487-08

PATIENT
  Sex: Female

DRUGS (2)
  1. SUBUTEX [Suspect]
     Indication: DRUG DEPENDENCE
     Route: 064
     Dates: start: 20080314, end: 20080427
  2. SUBUTEX [Suspect]
     Route: 064
     Dates: start: 20080311, end: 20080313

REACTIONS (1)
  - PREMATURE BABY [None]
